FAERS Safety Report 8502926-6 (Version None)
Quarter: 2012Q3

REPORT INFORMATION
  Report Type: 
  Country: None (occurrence: None)
  Receive Date: 20120711
  Receipt Date: 20120704
  Transmission Date: 20120928
  Serious: Yes (Other)
  Sender: FDA-Public Use
  Company Number: JP-PFIZER INC-2012146718

PATIENT
  Age: 65 Year
  Sex: Male
  Weight: 59.5 kg

DRUGS (16)
  1. NEUROTROPIN [Concomitant]
     Dosage: UNK
  2. ANPLAG [Concomitant]
     Dosage: 100 MG, THRICE DAILY
     Route: 048
     Dates: start: 20111205
  3. AMARYL [Concomitant]
     Dosage: UNK
     Route: 048
  4. VOLTAREN [Concomitant]
     Indication: PAIN IN EXTREMITY
     Dosage: 25 MG, ONCE DAILY
     Route: 054
     Dates: start: 20111205
  5. LYRICA [Suspect]
     Indication: HYPOAESTHESIA
  6. LYRICA [Suspect]
     Indication: PAIN
     Dosage: 75 MG, 2X/DAY
     Route: 048
     Dates: start: 20120112
  7. SITAGLIPTIN PHOSPHATE [Concomitant]
     Dosage: UNK
     Route: 048
  8. CLONAZEPAM [Suspect]
     Dosage: UNK
     Route: 048
  9. RABEPRAZOLE SODIUM [Concomitant]
     Dosage: UNK
     Route: 048
  10. ASPIRIN [Concomitant]
     Dosage: UNK
     Route: 048
  11. SUMILU [Concomitant]
     Indication: PAIN IN EXTREMITY
     Dosage: UNK, SEVERAL TIMES A DAY
     Route: 061
     Dates: start: 20111205
  12. TRAMADOL HYDROCHLORIDE/ACETAMINOPHEN [Concomitant]
     Indication: PAIN
     Dosage: UNK
  13. CONIEL [Concomitant]
     Dosage: UNK
     Route: 048
  14. METFORMIN HCL [Concomitant]
     Dosage: UNK
     Route: 048
  15. VITAMIN B12 [Concomitant]
     Dosage: UNK
     Route: 048
  16. LOSARTAN POTASSIUM AND HYDROCHLOROTHIAZIDE [Concomitant]
     Dosage: UNK
     Route: 048

REACTIONS (2)
  - LOSS OF CONSCIOUSNESS [None]
  - ROAD TRAFFIC ACCIDENT [None]
